FAERS Safety Report 20556953 (Version 3)
Quarter: 2022Q3

REPORT INFORMATION
  Report Type: Spontaneous
  Country: JP (occurrence: JP)
  Receive Date: 20220307
  Receipt Date: 20220714
  Transmission Date: 20221027
  Serious: Yes (Other)
  Sender: FDA-Public Use
  Company Number: JP-GSKNCCC-Case-01426175_AE-55013

PATIENT

DRUGS (12)
  1. LAMICTAL [Suspect]
     Active Substance: LAMOTRIGINE
     Indication: Epilepsy
     Dosage: 5 MG, BID
     Route: 048
     Dates: start: 20190924, end: 20191015
  2. LAMICTAL [Suspect]
     Active Substance: LAMOTRIGINE
     Dosage: 10 MG, BID
     Route: 048
     Dates: start: 20191016, end: 20191029
  3. LAMICTAL [Suspect]
     Active Substance: LAMOTRIGINE
     Dosage: 15 MG, BID
     Route: 048
     Dates: start: 20191030, end: 20191118
  4. LAMICTAL [Suspect]
     Active Substance: LAMOTRIGINE
     Dosage: 20 MG, BID
     Route: 048
     Dates: start: 20191119, end: 20200120
  5. LAMICTAL [Suspect]
     Active Substance: LAMOTRIGINE
     Dosage: 30 MG, BID
     Route: 048
     Dates: start: 20200121, end: 20200217
  6. LAMICTAL [Suspect]
     Active Substance: LAMOTRIGINE
     Dosage: 35 MG, BID
     Route: 048
     Dates: start: 20200218, end: 20200309
  7. LAMICTAL [Suspect]
     Active Substance: LAMOTRIGINE
     Dosage: 85 MG (35MG+50MG)
     Route: 048
     Dates: start: 20200310, end: 20200405
  8. LAMICTAL [Suspect]
     Active Substance: LAMOTRIGINE
     Dosage: 100 MG (50MG+50MG)
     Route: 048
     Dates: start: 20200406, end: 20200511
  9. LAMICTAL [Suspect]
     Active Substance: LAMOTRIGINE
     Dosage: 110 MG (55MG+55MG)
     Route: 048
     Dates: start: 20200512, end: 20200928
  10. LAMICTAL [Suspect]
     Active Substance: LAMOTRIGINE
     Dosage: 125 MG (50MG+75MG)
     Route: 048
     Dates: start: 20200929, end: 20201116
  11. LAMICTAL [Suspect]
     Active Substance: LAMOTRIGINE
     Dosage: 150 MG (50MG+100MG)
     Route: 048
     Dates: start: 20201117
  12. LEVETIRACETAM [Concomitant]
     Active Substance: LEVETIRACETAM
     Dosage: 250 MG, BID

REACTIONS (2)
  - Epilepsy [Recovered/Resolved]
  - Loss of consciousness [Recovered/Resolved]

NARRATIVE: CASE EVENT DATE: 20220201
